FAERS Safety Report 11613779 (Version 1)
Quarter: 2015Q4

REPORT INFORMATION
  Report Type: Other
  Country: GB (occurrence: GB)
  Receive Date: 20151008
  Receipt Date: 20151008
  Transmission Date: 20160304
  Serious: Yes (Other)
  Sender: FDA-Public Use
  Company Number: GB-MYLANLABS-2015M1033012

PATIENT

DRUGS (1)
  1. GABAPENTIN. [Suspect]
     Active Substance: GABAPENTIN
     Indication: PAIN
     Dosage: 100 MG, UNK (TAKE ONE ON DAY ONE)
     Route: 048
     Dates: start: 20150916, end: 20150916

REACTIONS (4)
  - Paraesthesia [Recovering/Resolving]
  - Malaise [Recovering/Resolving]
  - Hemiplegia [Recovering/Resolving]
  - Pain [Recovering/Resolving]
